FAERS Safety Report 8171950-8 (Version None)
Quarter: 2012Q1

REPORT INFORMATION
  Report Type: 
  Country: None (occurrence: None)
  Receive Date: 20120228
  Receipt Date: 20120215
  Transmission Date: 20120608
  Serious: Yes (Other)
  Sender: FDA-Public Use
  Company Number: JP-ROCHE-1043306

PATIENT
  Sex: Male

DRUGS (22)
  1. RANIBIZUMAB [Suspect]
     Route: 050
     Dates: start: 20100722
  2. GATIFLOXACIN [Concomitant]
     Dates: start: 20090401, end: 20090601
  3. KALLIDINOGENASE [Concomitant]
     Dates: start: 20090521, end: 20090617
  4. GANATON [Concomitant]
  5. RANIBIZUMAB [Suspect]
     Route: 050
     Dates: start: 20091203
  6. NITRODERM [Concomitant]
  7. RANIBIZUMAB [Suspect]
     Indication: AGE-RELATED MACULAR DEGENERATION
     Route: 050
     Dates: start: 20090423
  8. RANIBIZUMAB [Suspect]
     Route: 050
     Dates: start: 20100624
  9. VISUDYNE [Concomitant]
     Dates: start: 20080901, end: 20090114
  10. MUCOSTA [Concomitant]
  11. WARFARIN SODIUM [Concomitant]
  12. RANIBIZUMAB [Suspect]
     Route: 050
     Dates: start: 20090623
  13. RANIBIZUMAB [Suspect]
     Route: 050
     Dates: start: 20091105
  14. RANIBIZUMAB [Suspect]
     Route: 050
     Dates: start: 20110602
  15. LANSOPRAZOLE [Concomitant]
  16. RANIBIZUMAB [Suspect]
     Route: 050
     Dates: start: 20090526
  17. RANIBIZUMAB [Suspect]
     Route: 050
     Dates: start: 20110224
  18. DILTIAZEM HCL [Concomitant]
  19. RANIBIZUMAB [Suspect]
     Route: 050
     Dates: start: 20090716
  20. ASPIRIN [Concomitant]
  21. RANIBIZUMAB [Suspect]
     Route: 050
     Dates: start: 20100411
  22. AMBROXOL HYDROCHLORIDE [Concomitant]

REACTIONS (3)
  - VITREOUS HAEMORRHAGE [None]
  - RETINAL HAEMORRHAGE [None]
  - INAPPROPRIATE SCHEDULE OF DRUG ADMINISTRATION [None]
